FAERS Safety Report 15081717 (Version 1)
Quarter: 2018Q2

REPORT INFORMATION
  Report Type: Spontaneous
  Country: US (occurrence: US)
  Receive Date: 20180628
  Receipt Date: 20180628
  Transmission Date: 20180711
  Serious: No
  Sender: FDA-Public Use
  Company Number: US-PFIZER INC-2018261762

PATIENT
  Age: 57 Year
  Sex: Male

DRUGS (1)
  1. EMBEDA [Suspect]
     Active Substance: MORPHINE SULFATE\NALTREXONE HYDROCHLORIDE
     Dosage: 20 MG, 2X/DAY [1PO BID]
     Route: 048
     Dates: start: 20180519

REACTIONS (1)
  - Pain [Unknown]

NARRATIVE: CASE EVENT DATE: 2018
